FAERS Safety Report 13812026 (Version 2)
Quarter: 2017Q3

REPORT INFORMATION
  Report Type: Report from Study
  Country: US (occurrence: US)
  Receive Date: 20170728
  Receipt Date: 20170831
  Transmission Date: 20171127
  Serious: Yes (Other)
  Sender: FDA-Public Use
  Company Number: US-AMGEN-USASL2017097175

PATIENT
  Age: 63 Year
  Sex: Male

DRUGS (3)
  1. REPATHA [Suspect]
     Active Substance: EVOLOCUMAB
     Dosage: UNK, Q2WK
     Route: 065
  2. REPATHA [Suspect]
     Active Substance: EVOLOCUMAB
     Indication: BLOOD CHOLESTEROL INCREASED
     Dosage: UNK, QMO
     Route: 065
  3. REPATHA [Suspect]
     Active Substance: EVOLOCUMAB
     Dosage: 420 MG, Q4WK
     Route: 065

REACTIONS (10)
  - Foot fracture [Unknown]
  - Contusion [Unknown]
  - Weight loss poor [Unknown]
  - Oropharyngeal pain [Unknown]
  - Pain in extremity [Unknown]
  - Phantom pain [Unknown]
  - Injection site discomfort [Unknown]
  - Hypoaesthesia [Unknown]
  - Paraesthesia [Unknown]
  - Cough [Unknown]
